FAERS Safety Report 9999120 (Version 2)
Quarter: 2014Q1

REPORT INFORMATION
  Report Type: Spontaneous
  Country: FR (occurrence: None)
  Receive Date: 20140310
  Receipt Date: 20140324
  Transmission Date: 20141002
  Serious: Yes (Other)
  Sender: FDA-Public Use
  Company Number: 2014056294

PATIENT
  Age: 78 Year
  Sex: Female

DRUGS (8)
  1. FRAGMINE [Suspect]
     Indication: CEREBROVASCULAR ACCIDENT PROPHYLAXIS
     Route: 058
     Dates: start: 20130510, end: 20130513
  2. ASPEGIC [Suspect]
     Indication: CEREBROVASCULAR ACCIDENT PROPHYLAXIS
     Route: 042
     Dates: start: 20130510, end: 20130513
  3. PRADAXA [Suspect]
     Route: 048
     Dates: start: 20130514, end: 20130515
  4. AMOXICILLIN SODIUM/CLAVULANATE POTASSIUM (AMOXICILLIN SODIUM, CLAVULANATE POTASSIUM) [Concomitant]
  5. SEROPLEX (ESCITALOPRAM OXALATE) [Concomitant]
  6. ALDACTAZINE (ALTIZIDE, SPIRONOLACTONE) [Concomitant]
  7. LEVOTHYROX (LEVOTHYROXINE SODIUM) [Concomitant]
  8. CALCIPARIN (HEPARIN CALCIUM) [Concomitant]

REACTIONS (1)
  - Deep vein thrombosis [None]
